FAERS Safety Report 20401372 (Version 2)
Quarter: 2022Q1

REPORT INFORMATION
  Report Type: Spontaneous
  Country: US (occurrence: US)
  Receive Date: 20220131
  Receipt Date: 20220201
  Transmission Date: 20220423
  Serious: No
  Sender: FDA-Public Use
  Company Number: US-ABBVIE-21K-163-4074766-00

PATIENT
  Age: 35 Year
  Sex: Female
  Weight: 95.340 kg

DRUGS (9)
  1. HUMIRA [Suspect]
     Active Substance: ADALIMUMAB
     Indication: Rheumatoid arthritis
     Route: 058
     Dates: start: 20210506
  2. METHOTREXATE [Concomitant]
     Active Substance: METHOTREXATE
     Indication: Rheumatoid arthritis
  3. Folic Acid (NON-ABBVIE) [Concomitant]
     Indication: Supplementation therapy
  4. Vitamin B. 2 (NON-ABBVIE) [Concomitant]
     Indication: Supplementation therapy
  5. Amlodipine (NON-ABBVIE) [Concomitant]
     Indication: Hypertension
  6. Metoprolol (NON-ABBVIE) [Concomitant]
     Indication: Hypertension
  7. Hydrochlorothiazide (NON-ABBVIE) [Concomitant]
     Indication: Product used for unknown indication
  8. Vitamin e (NON-ABBVIE) [Concomitant]
     Indication: Supplementation therapy
  9. Norlyda (NON-ABBVIE) [Concomitant]
     Indication: Contraception

REACTIONS (2)
  - Injection site haemorrhage [Recovered/Resolved]
  - Wrong technique in product usage process [Recovered/Resolved]

NARRATIVE: CASE EVENT DATE: 20210826
